FAERS Safety Report 12789188 (Version 1)
Quarter: 2016Q3

REPORT INFORMATION
  Report Type: Spontaneous
  Country: US (occurrence: US)
  Receive Date: 20160928
  Receipt Date: 20160928
  Transmission Date: 20161109
  Serious: No
  Sender: FDA-Public Use
  Company Number: US-PFIZER INC-2016452012

PATIENT
  Age: 48 Year
  Sex: Female

DRUGS (3)
  1. ELLENCE [Suspect]
     Active Substance: EPIRUBICIN HYDROCHLORIDE
     Indication: BREAST CANCER FEMALE
     Dosage: UNK, CYCLIC (D1 Q 21 D CYCLE V1.0)
     Dates: start: 20150129, end: 20150402
  2. CYTOXAN [Suspect]
     Active Substance: CYCLOPHOSPHAMIDE
     Indication: BREAST CANCER FEMALE
     Dosage: UNK, CYCLIC (D1 Q 21 D CYCLE V1.0)
     Dates: start: 20150129, end: 20150402
  3. FLUOROURACIL. [Suspect]
     Active Substance: FLUOROURACIL
     Indication: BREAST CANCER FEMALE
     Dosage: UNK, CYCLIC (D1 Q 21 D CYCLE V1.0)
     Dates: start: 20150129, end: 20150402

REACTIONS (1)
  - Neoplasm progression [Unknown]
